FAERS Safety Report 10561092 (Version 1)
Quarter: 2014Q4

REPORT INFORMATION
  Report Type: Spontaneous
  Country: US (occurrence: US)
  Receive Date: 20141103
  Receipt Date: 20141103
  Transmission Date: 20150529
  Serious: No
  Sender: FDA-Public Use
  Company Number: US-GLAXOSMITHKLINE-US2014GSK015603

PATIENT
  Sex: Female

DRUGS (10)
  1. INSULIN [Concomitant]
     Active Substance: INSULIN NOS
  2. PLAVIX [Concomitant]
     Active Substance: CLOPIDOGREL BISULFATE
  3. SIMVASTATIN. [Concomitant]
     Active Substance: SIMVASTATIN
  4. PREDNISONE. [Concomitant]
     Active Substance: PREDNISONE
  5. AMLODIPINE [Concomitant]
     Active Substance: AMLODIPINE BESYLATE
  6. OTHER MEDICATIONS [Concomitant]
     Active Substance: UNSPECIFIED INGREDIENT
  7. ADVAIR HFA [Suspect]
     Active Substance: FLUTICASONE PROPIONATE\SALMETEROL XINAFOATE
     Indication: EMPHYSEMA
     Dosage: UNK, U
  8. ASPIRIN. [Concomitant]
     Active Substance: ASPIRIN
  9. SPIRIVA [Concomitant]
     Active Substance: TIOTROPIUM BROMIDE MONOHYDRATE
     Indication: EMPHYSEMA
  10. OXYGEN. [Concomitant]
     Active Substance: OXYGEN
     Indication: EMPHYSEMA

REACTIONS (1)
  - Drug ineffective [Unknown]
